FAERS Safety Report 11636368 (Version 1)
Quarter: 2015Q4

REPORT INFORMATION
  Report Type: Spontaneous
  Country: US (occurrence: US)
  Receive Date: 20151016
  Receipt Date: 20151016
  Transmission Date: 20160304
  Serious: Yes (Other)
  Sender: FDA-Public Use
  Company Number: US-009507513-1510USA007075

PATIENT

DRUGS (2)
  1. INFLUENZA VIRUS VACCINE INACTIVATED (UNSPECIFIED) [Suspect]
     Active Substance: INFLUENZA VIRUS VACCINE
     Route: 065
  2. JANUVIA [Suspect]
     Active Substance: SITAGLIPTIN PHOSPHATE
     Dosage: UNK
     Route: 048
     Dates: start: 2005

REACTIONS (4)
  - Guillain-Barre syndrome [Unknown]
  - Peripheral swelling [Unknown]
  - Neuralgia [Unknown]
  - Joint swelling [Unknown]
